FAERS Safety Report 15887346 (Version 2)
Quarter: 2019Q1

REPORT INFORMATION
  Report Type: Report from Study
  Country: JP (occurrence: JP)
  Receive Date: 20190130
  Receipt Date: 20190208
  Transmission Date: 20190417
  Serious: No
  Sender: FDA-Public Use
  Company Number: JP-ROCHE-2236794

PATIENT
  Age: 77 Year
  Sex: Male
  Weight: 61 kg

DRUGS (3)
  1. ATEZOLIZUMAB. [Suspect]
     Active Substance: ATEZOLIZUMAB
     Indication: NON-SMALL CELL LUNG CANCER
     Route: 041
     Dates: start: 20180914, end: 20181026
  2. MAGMITT [Suspect]
     Active Substance: MAGNESIUM OXIDE
     Indication: PRODUCT USED FOR UNKNOWN INDICATION
     Route: 048
     Dates: start: 20171201
  3. MEDICON (DEXTROMETHORPHAN HYDROBROMIDE) [Suspect]
     Active Substance: DEXTROMETHORPHAN HYDROBROMIDE
     Indication: LUNG ADENOCARCINOMA
     Route: 048
     Dates: start: 20180216

REACTIONS (1)
  - Infusion related reaction [Recovering/Resolving]

NARRATIVE: CASE EVENT DATE: 20180928
